FAERS Safety Report 10059770 (Version 10)
Quarter: 2015Q2

REPORT INFORMATION
  Report Type: Report from Study
  Country: US (occurrence: US)
  Receive Date: 20140404
  Receipt Date: 20150629
  Transmission Date: 20150821
  Serious: Yes (Other)
  Sender: FDA-Public Use
  Company Number: US-SA-2014SA029673

PATIENT
  Age: 50 Year
  Sex: Female

DRUGS (3)
  1. AUBAGIO [Suspect]
     Active Substance: TERIFLUNOMIDE
     Indication: MULTIPLE SCLEROSIS
     Route: 048
     Dates: start: 20150410
  2. SOLU-MEDROL [Concomitant]
     Active Substance: METHYLPREDNISOLONE SODIUM SUCCINATE
  3. AUBAGIO [Suspect]
     Active Substance: TERIFLUNOMIDE
     Indication: MULTIPLE SCLEROSIS
     Route: 048
     Dates: start: 20140227

REACTIONS (16)
  - Sinusitis [Unknown]
  - Diarrhoea [Unknown]
  - Vertigo [Unknown]
  - Stress [Unknown]
  - Hypoaesthesia [Unknown]
  - Influenza [Recovered/Resolved]
  - Retinal detachment [Not Recovered/Not Resolved]
  - Diplopia [Recovering/Resolving]
  - Dysstasia [Unknown]
  - Blood glucose increased [Not Recovered/Not Resolved]
  - Nasopharyngitis [Recovered/Resolved]
  - Dizziness [Recovered/Resolved]
  - Multiple sclerosis relapse [Unknown]
  - Optic neuritis [Unknown]
  - Vision blurred [Unknown]
  - Blood cholesterol increased [Unknown]

NARRATIVE: CASE EVENT DATE: 2014
